FAERS Safety Report 6304782-3 (Version None)
Quarter: 2009Q3

REPORT INFORMATION
  Report Type: 
  Country: None (occurrence: None)
  Receive Date: 20090811
  Receipt Date: 20090806
  Transmission Date: 20100115
  Serious: No
  Sender: FDA-Public Use
  Company Number: US-B.I. PHARMACEUTICALS,INC./RIDGEFIELD-2009-BP-09275BP

PATIENT
  Sex: Male

DRUGS (6)
  1. MIRAPEX [Suspect]
     Indication: RESTLESS LEGS SYNDROME
     Dosage: 1 MG
     Dates: start: 20060101
  2. COUMADIN [Concomitant]
     Indication: CARDIAC DISORDER
     Route: 048
  3. SOTALOL HCL [Concomitant]
     Indication: ARRHYTHMIA
     Route: 048
  4. NEURONTIN [Concomitant]
     Route: 048
  5. METFORMIN [Concomitant]
     Indication: DIABETES MELLITUS
     Route: 048
  6. FISH OIL [Concomitant]
     Indication: SUPPLEMENTATION THERAPY
     Route: 048

REACTIONS (1)
  - INTERNATIONAL NORMALISED RATIO DECREASED [None]
